FAERS Safety Report 6622151-3 (Version None)
Quarter: 2010Q1

REPORT INFORMATION
  Report Type: 
  Country: None (occurrence: None)
  Receive Date: 20100309
  Receipt Date: 20100301
  Transmission Date: 20100710
  Serious: Yes (Death, Other)
  Sender: FDA-Public Use
  Company Number: JP-BRISTOL-MYERS SQUIBB COMPANY-14978399

PATIENT
  Age: 66 Year
  Sex: Female
  Weight: 38 kg

DRUGS (9)
  1. CISPLATIN [Suspect]
     Indication: CERVIX CARCINOMA STAGE IV
     Route: 042
     Dates: start: 20091217, end: 20091217
  2. CISPLATIN [Suspect]
     Route: 042
     Dates: start: 20100128, end: 20100128
  3. S-1 [Suspect]
     Indication: CERVIX CARCINOMA STAGE IV
     Route: 048
     Dates: start: 20091217, end: 20091221
  4. S-1 [Suspect]
     Route: 048
     Dates: start: 20100128, end: 20100128
  5. PURSENNID [Concomitant]
     Indication: CONSTIPATION
     Route: 048
     Dates: start: 20091221, end: 20100203
  6. AMLODIPINE BESYLATE [Concomitant]
     Indication: HYPERTENSION
     Route: 048
     Dates: start: 20091101, end: 20100214
  7. MOHRUS [Concomitant]
     Indication: BACK PAIN
     Dosage: QS ROUTE:EXTERNAL
     Route: 003
     Dates: start: 20100130, end: 20100130
  8. MAGMITT [Concomitant]
     Indication: CONSTIPATION
     Route: 048
     Dates: start: 20100115, end: 20100204
  9. NAUZELIN [Concomitant]
     Indication: NAUSEA
     Route: 048
     Dates: start: 20100130, end: 20100203

REACTIONS (3)
  - MYOCARDIAL INFARCTION [None]
  - NEUTROPENIA [None]
  - THROMBOCYTOPENIA [None]
